FAERS Safety Report 4733492-9 (Version None)
Quarter: 2005Q3

REPORT INFORMATION
  Report Type: 
  Country: None (occurrence: None)
  Receive Date: 20050803
  Receipt Date: 20050629
  Transmission Date: 20060218
  Serious: Yes (Other)
  Sender: FDA-Public Use
  Company Number: US-BRISTOL-MYERS SQUIBB COMPANY-13020565

PATIENT
  Age: 47 Year
  Sex: Male
  Weight: 97 kg

DRUGS (2)
  1. CETUXIMAB [Suspect]
     Indication: PANCREATIC CARCINOMA
     Dosage: COURSE 1 START DATE 27-MAY-05 (TOTAL DOSE THIS COURSE 2471 MG). COURSE 2 START DATE 24-JUN-05-540MG
     Route: 042
     Dates: start: 20050527
  2. GEMCITABINE HCL [Suspect]
     Indication: PANCREATIC CARCINOMA
     Dosage: COURSE 1 START DATE 27-MAY-05 (TOTAL DOSE THIS COURSE 8600MG). COURSE 2 START DATE 24-JUN-05-2160 MG
     Route: 042
     Dates: start: 20050527

REACTIONS (13)
  - ABDOMINAL PAIN [None]
  - ALANINE AMINOTRANSFERASE INCREASED [None]
  - ASPARTATE AMINOTRANSFERASE INCREASED [None]
  - BLOOD ALKALINE PHOSPHATASE INCREASED [None]
  - DERMATITIS ACNEIFORM [None]
  - DIARRHOEA [None]
  - DYSPEPSIA [None]
  - FATIGUE [None]
  - HYPERBILIRUBINAEMIA [None]
  - HYPERGLYCAEMIA [None]
  - NAUSEA [None]
  - POLLAKIURIA [None]
  - PRURITUS [None]
